FAERS Safety Report 6571874-3 (Version None)
Quarter: 2010Q1

REPORT INFORMATION
  Report Type: 
  Country: None (occurrence: None)
  Receive Date: 20100205
  Receipt Date: 20100204
  Transmission Date: 20100710
  Serious: Yes (Other)
  Sender: FDA-Public Use
  Company Number: US-BRISTOL-MYERS SQUIBB COMPANY-14687230

PATIENT
  Age: 21 Year
  Sex: Female

DRUGS (8)
  1. ABILIFY [Suspect]
     Indication: BIPOLAR DISORDER
     Dates: end: 20080301
  2. PERCOCET [Suspect]
     Dates: start: 20080101, end: 20080301
  3. REBIF [Suspect]
     Indication: MULTIPLE SCLEROSIS
     Dosage: 08NOV04-28JUN05, 01MAY06-15MAR08.
     Dates: start: 20041108, end: 20080315
  4. ECSTASY [Suspect]
     Dates: start: 20080101, end: 20080101
  5. ETHANOL [Suspect]
     Dates: end: 20080301
  6. TYLOX [Suspect]
     Dates: start: 20080101, end: 20080301
  7. TYLENOL-500 [Concomitant]
     Indication: BACK PAIN
  8. MITOZANTRONE [Concomitant]
     Indication: MULTIPLE SCLEROSIS
     Dates: start: 20070301, end: 20070301

REACTIONS (11)
  - AFFECT LABILITY [None]
  - AMNESIA [None]
  - ANTEPARTUM HAEMORRHAGE [None]
  - BALANCE DISORDER [None]
  - BONE PAIN [None]
  - CHLAMYDIAL INFECTION [None]
  - DEPRESSION [None]
  - FALL [None]
  - HYPOAESTHESIA [None]
  - LOSS OF CONSCIOUSNESS [None]
  - PREGNANCY [None]
